FAERS Safety Report 8945527 (Version 2)
Quarter: 2012Q4

REPORT INFORMATION
  Report Type: 
  Country: US (occurrence: US)
  Receive Date: 20121205
  Receipt Date: 20121217
  Transmission Date: 20130627
  Serious: Yes (Other)
  Sender: FDA-Public Use
  Company Number: US-PFIZER INC-2012302113

PATIENT
  Age: 55 Year
  Sex: Male
  Weight: 91.61 kg

DRUGS (2)
  1. VIAGRA [Suspect]
     Indication: ERECTILE DYSFUNCTION
     Dosage: UNK
  2. GABAPENTIN [Concomitant]
     Indication: PAIN
     Dosage: UNK

REACTIONS (3)
  - Sciatica [Unknown]
  - Intervertebral disc protrusion [Unknown]
  - Neuropathy peripheral [Unknown]
